FAERS Safety Report 4814158-3 (Version None)
Quarter: 2005Q4

REPORT INFORMATION
  Report Type: 
  Country: None (occurrence: None)
  Receive Date: 20051028
  Receipt Date: 20050712
  Transmission Date: 20060501
  Serious: No
  Sender: FDA-Public Use
  Company Number: US-GLAXOSMITHKLINE-A0565912A

PATIENT
  Age: 77 Year
  Sex: Female
  Weight: 60.5 kg

DRUGS (9)
  1. ADVAIR DISKUS 100/50 [Suspect]
     Indication: CHRONIC OBSTRUCTIVE PULMONARY DISEASE
     Dosage: 1PUFF TWICE PER DAY
     Route: 055
  2. ATROVENT [Concomitant]
     Dosage: 1PUFF THREE TIMES PER DAY
     Route: 055
  3. ALBUTEROL [Concomitant]
     Dosage: 2PUFF AS REQUIRED
     Route: 055
  4. LISINOPRIL [Concomitant]
     Dosage: 40MG PER DAY
     Route: 048
  5. NORVASC [Concomitant]
     Dosage: 5MG PER DAY
     Route: 048
  6. DETROL [Concomitant]
  7. CALTRATE [Concomitant]
  8. ACIPHEX [Concomitant]
     Dosage: 20MG PER DAY
  9. SYNTHROID [Concomitant]
     Dosage: 75MG PER DAY
     Route: 048

REACTIONS (3)
  - DYSPHONIA [None]
  - ORAL CANDIDIASIS [None]
  - PHARYNGOLARYNGEAL PAIN [None]
